FAERS Safety Report 14618741 (Version 2)
Quarter: 2018Q2

REPORT INFORMATION
  Report Type: Report from Study
  Country: US (occurrence: US)
  Receive Date: 20180309
  Receipt Date: 20180405
  Transmission Date: 20180711
  Serious: No
  Sender: FDA-Public Use
  Company Number: US-JAZZ-2017-US-013588

PATIENT
  Sex: Female

DRUGS (2)
  1. XYREM [Suspect]
     Active Substance: SODIUM OXYBATE
     Indication: NARCOLEPSY
     Dosage: 2.25 G, BID
     Route: 048
     Dates: start: 20171012, end: 2017
  2. XYREM [Suspect]
     Active Substance: SODIUM OXYBATE
     Dosage: 4.5 G, BID
     Route: 048
     Dates: start: 201711

REACTIONS (5)
  - Cardiac murmur [Not Recovered/Not Resolved]
  - Tongue disorder [Recovered/Resolved]
  - Bradyphrenia [Not Recovered/Not Resolved]
  - Tremor [Not Recovered/Not Resolved]
  - Formication [Not Recovered/Not Resolved]
